FAERS Safety Report 10058599 (Version 1)
Quarter: 2014Q2

REPORT INFORMATION
  Report Type: Spontaneous
  Country: FR (occurrence: FR)
  Receive Date: 20140404
  Receipt Date: 20140404
  Transmission Date: 20141212
  Serious: Yes (Hospitalization)
  Sender: FDA-Public Use
  Company Number: FR-TEVA-470950ISR

PATIENT
  Age: 80 Year
  Sex: Male

DRUGS (5)
  1. METHOTREXATE TEVA 10% (1G/10ML) [Suspect]
     Dosage: 10 MILLIGRAM DAILY;
     Route: 042
     Dates: start: 20130829, end: 20130905
  2. INEXIUM 40MG [Interacting]
     Dosage: 40 MILLIGRAM DAILY; BEFORE AUGUST 2013
     Route: 048
     Dates: start: 2013
  3. CARDENSIEL [Concomitant]
     Dosage: 7.5 MILLIGRAM DAILY; LONG STANDING TREATMENT
     Route: 048
  4. SIMVASTATINE [Concomitant]
     Dosage: 40 MILLIGRAM DAILY; LONG STANDING TREATMENT
  5. ATACAND [Concomitant]
     Dosage: 4 MILLIGRAM DAILY; LONG STANDING TREATMENT
     Route: 048

REACTIONS (5)
  - Pancytopenia [Recovered/Resolved]
  - Mucosal inflammation [Recovered/Resolved]
  - Rash [Recovered/Resolved]
  - General physical health deterioration [Unknown]
  - Drug interaction [Unknown]
